FAERS Safety Report 11934546 (Version 3)
Quarter: 2016Q1

REPORT INFORMATION
  Report Type: Spontaneous
  Country: JP (occurrence: JP)
  Receive Date: 20160121
  Receipt Date: 20160209
  Transmission Date: 20160526
  Serious: Yes (Life-Threatening)
  Sender: FDA-Public Use
  Company Number: JP-009507513-1601JPN002933

PATIENT
  Sex: Male

DRUGS (2)
  1. BELSOMRA [Suspect]
     Active Substance: SUVOREXANT
     Dosage: 20 MG, QD
     Route: 048
     Dates: end: 20151224
  2. SILECE [Suspect]
     Active Substance: FLUNITRAZEPAM
     Indication: SEDATION
     Dosage: DAILY DOSAGE UNKNOWN
     Route: 051
     Dates: start: 20160105, end: 20160105

REACTIONS (1)
  - Respiratory depression [Recovered/Resolved]

NARRATIVE: CASE EVENT DATE: 20160105
